FAERS Safety Report 10081610 (Version 1)
Quarter: 2014Q2

REPORT INFORMATION
  Report Type: Spontaneous
  Country: ES (occurrence: None)
  Receive Date: 20140414
  Receipt Date: 20140414
  Transmission Date: 20141212
  Serious: No
  Sender: FDA-Public Use
  Company Number: B0984477A

PATIENT
  Age: 29 Year
  Sex: Female

DRUGS (2)
  1. ONDANSETRON HYDROCHLORIDE [Suspect]
     Indication: INVASIVE DUCTAL BREAST CARCINOMA
     Route: 042
  2. DEXAMETHASONE [Concomitant]

REACTIONS (1)
  - Anaphylactic reaction [None]
